FAERS Safety Report 11596885 (Version 4)
Quarter: 2015Q4

REPORT INFORMATION
  Report Type: Spontaneous
  Country: DE (occurrence: DE)
  Receive Date: 20151006
  Receipt Date: 20151228
  Transmission Date: 20160304
  Serious: Yes (Death, Hospitalization)
  Sender: FDA-Public Use
  Company Number: DE-JAZZ-2015-DE-015365

PATIENT
  Age: 59 Year
  Sex: Male
  Weight: 71 kg

DRUGS (6)
  1. PRIALT [Suspect]
     Active Substance: ZICONOTIDE ACETATE
     Indication: PAIN
     Dosage: 0.042 ?G, QH
     Route: 037
     Dates: start: 20140506, end: 20140924
  2. MORPHINE [Suspect]
     Active Substance: MORPHINE
     Indication: PAIN
     Dosage: 16 MG, QH
     Dates: start: 20140506
  3. METAMIZOLE [Concomitant]
     Active Substance: METAMIZOLE
     Indication: PAIN
     Dosage: 1500 MG, UNK
  4. PRIALT [Suspect]
     Active Substance: ZICONOTIDE ACETATE
     Dosage: 0.175 ?G, QH
     Route: 037
     Dates: start: 20140924
  5. MORPHINE [Suspect]
     Active Substance: MORPHINE
     Dosage: 17.19 MG, QH
     Dates: start: 20140924
  6. DICLOFENAC [Concomitant]
     Active Substance: DICLOFENAC

REACTIONS (6)
  - Septic shock [Fatal]
  - Anaemia [Not Recovered/Not Resolved]
  - Cardiac arrest [Unknown]
  - Deep vein thrombosis [Unknown]
  - Diarrhoea [Unknown]
  - Acute kidney injury [Fatal]

NARRATIVE: CASE EVENT DATE: 2014
